FAERS Safety Report 25727162 (Version 1)
Quarter: 2025Q3

REPORT INFORMATION
  Report Type: Spontaneous
  Country: US (occurrence: None)
  Receive Date: 20250825
  Receipt Date: 20250825
  Transmission Date: 20251021
  Serious: Yes (Hospitalization)
  Sender: FDA-CTU
  Company Number: None

PATIENT
  Age: 71 Year
  Sex: Female
  Weight: 74.7 kg

DRUGS (3)
  1. NORETHINDRONE [Suspect]
     Active Substance: NORETHINDRONE
     Indication: Postmenopausal haemorrhage
     Dosage: FREQUENCY : DAILY;?
     Route: 048
     Dates: start: 20250423, end: 20250603
  2. Atorvastatin 80mg daily [Concomitant]
  3. Carvedilol 12.5mg BID [Concomitant]

REACTIONS (9)
  - Groin pain [None]
  - Pain in extremity [None]
  - Peripheral swelling [None]
  - Endometrial thickening [None]
  - Uterine leiomyoma [None]
  - Hypotension [None]
  - Tenderness [None]
  - Peripheral vein thrombus extension [None]
  - Deep vein thrombosis [None]

NARRATIVE: CASE EVENT DATE: 20250505
